FAERS Safety Report 16344848 (Version 3)
Quarter: 2019Q2

REPORT INFORMATION
  Report Type: Spontaneous
  Country: US (occurrence: US)
  Receive Date: 20190522
  Receipt Date: 20190629
  Transmission Date: 20190711
  Serious: No
  Sender: FDA-Public Use
  Company Number: US-CELGENEUS-USA-20190506059

PATIENT
  Age: 60 Year
  Sex: Male

DRUGS (3)
  1. OTEZLA [Suspect]
     Active Substance: APREMILAST
     Indication: PSORIASIS
     Dosage: (DAY 1 FROM PACK ONE AND DAY 1 FROM PACK TWO (TAKING ANOTHER 10 MG TABLET)
     Route: 048
     Dates: start: 20190514
  2. OTEZLA [Suspect]
     Active Substance: APREMILAST
     Indication: PSORIATIC ARTHROPATHY
     Dosage: 10,20,30 MG (TITRATING OVER 15 DAYS WITH 3 STARTER PACK)
     Route: 048
     Dates: start: 20190516
  3. OTEZLA [Suspect]
     Active Substance: APREMILAST
     Dosage: 10,20,30 MG (TITRATING OVER 15 DAYS WITH 3 STARTER PACK)
     Route: 048
     Dates: start: 201906, end: 201906

REACTIONS (5)
  - Gastrointestinal disorder [Unknown]
  - Expired product administered [Unknown]
  - Tension headache [Recovered/Resolved]
  - Nausea [Recovered/Resolved]
  - Diarrhoea [Unknown]

NARRATIVE: CASE EVENT DATE: 201905
